FAERS Safety Report 24995834 (Version 1)
Quarter: 2025Q1

REPORT INFORMATION
  Report Type: Report from Study
  Country: US (occurrence: US)
  Receive Date: 20250221
  Receipt Date: 20250221
  Transmission Date: 20250408
  Serious: No
  Sender: Day One Biopharmaceuticals
  Company Number: US-Day One Biopharmaceuticals Inc.-2025US000277

PATIENT

DRUGS (4)
  1. OJEMDA [Suspect]
     Active Substance: TOVORAFENIB
     Indication: Brain neoplasm malignant
     Route: 065
     Dates: start: 20250214, end: 20250214
  2. ALBUTEROL [Concomitant]
     Active Substance: ALBUTEROL
     Indication: Product used for unknown indication
     Route: 065
  3. JUBLIA [Concomitant]
     Active Substance: EFINACONAZOLE
     Indication: Product used for unknown indication
     Route: 065
  4. TRIAMCINOLONE [Concomitant]
     Active Substance: TRIAMCINOLONE
     Indication: Product used for unknown indication
     Route: 065

REACTIONS (1)
  - Accidental underdose [Unknown]

NARRATIVE: CASE EVENT DATE: 20250214
